FAERS Safety Report 9640359 (Version 3)
Quarter: 2014Q2

REPORT INFORMATION
  Report Type: Spontaneous
  Country: US (occurrence: None)
  Receive Date: 20131021
  Receipt Date: 20140522
  Transmission Date: 20141212
  Serious: Yes (Hospitalization)
  Sender: FDA-Public Use
  Company Number: QSC-2013-0360

PATIENT
  Age: 65 Year
  Sex: Male

DRUGS (18)
  1. H.P. ACTHAR GEL [Suspect]
     Indication: FOCAL SEGMENTAL GLOMERULOSCLEROSIS
     Dosage: 80 UNITS, BIW, SUBCUTANEOUS
     Route: 058
     Dates: start: 20130822, end: 2013
  2. RAPAMUNE (SIROLIMUS) [Concomitant]
  3. CELLCEPT (MYCOPHENOLATE MOFETIL) TABLET [Concomitant]
  4. METHIMAZOLE (THIAMAZOLE) [Concomitant]
  5. AMLODIPINE (AMLODIPINE) [Concomitant]
  6. ASPIRIN (ACETYLSALICYLIC ACID) [Concomitant]
  7. ATORVASTATIN (ATORVASTATIN) [Concomitant]
  8. CALCIUM CARBONATE (CALCIUM CARBONATE) [Concomitant]
  9. CARVEDILOL (CARVEDILOL) [Concomitant]
  10. DOCUSATE SODIUM (DOCUSATE SODIUM) [Concomitant]
  11. FLUTICASONE )FLUTICASONE) [Concomitant]
  12. LORTAB (HYDROCODONE BITARTRATE, PARACETAMOL) [Concomitant]
  13. LANTUS )INSULIN GLARGINE) [Concomitant]
  14. NEPHRON FA (ASCORBIC ACID, BIOTIN, CALCIUM PANTOTHENATE, CYANOCOBALAMIN, DOCUSATE SODIUM, FERROUS FUMARATE, FOLIC, NICOTINAMIDE, PYRIDOXINE, HYDROCHLORIDE, RIBOFLAVIN, THIAMINE HYDROCHLORIDE) [Concomitant]
  15. ESOMEPRAZOLE (ESOMEPRAZOLE) [Concomitant]
  16. TACROLIMUS (TACROLIMUS) [Concomitant]
  17. MIRALAX [Concomitant]
  18. FLOMAX (TAMSULOSIN HYDROCHLORIDE) [Concomitant]

REACTIONS (10)
  - Renal failure chronic [None]
  - Fluid overload [None]
  - Fluid retention [None]
  - Postoperative ileus [None]
  - Abdominal wall haemorrhage [None]
  - Dialysis [None]
  - Oedema [None]
  - Weight increased [None]
  - Dyspnoea [None]
  - Ecchymosis [None]
